FAERS Safety Report 7284911-8 (Version None)
Quarter: 2011Q1

REPORT INFORMATION
  Report Type: 
  Country: None (occurrence: None)
  Receive Date: 20110210
  Receipt Date: 20110131
  Transmission Date: 20110831
  Serious: Yes (Other)
  Sender: FDA-Public Use
  Company Number: US-BAYER-US-2006-030533

PATIENT
  Sex: Female

DRUGS (1)
  1. BETASERON [Suspect]
     Indication: RELAPSING-REMITTING MULTIPLE SCLEROSIS
     Dosage: 8 MIU, EVERY 2D
     Route: 058
     Dates: start: 19940623

REACTIONS (10)
  - OPTIC NERVE DISORDER [None]
  - INJECTION SITE SWELLING [None]
  - CUTANEOUS LUPUS ERYTHEMATOSUS [None]
  - PHOTODERMATOSIS [None]
  - INJECTION SITE MASS [None]
  - TELANGIECTASIA [None]
  - MILIA [None]
  - INJECTION SITE PAIN [None]
  - INJECTION SITE ERYTHEMA [None]
  - ACTINIC ELASTOSIS [None]
